FAERS Safety Report 13310618 (Version 3)
Quarter: 2018Q1

REPORT INFORMATION
  Report Type: Spontaneous
  Country: US (occurrence: US)
  Receive Date: 20170309
  Receipt Date: 20180118
  Transmission Date: 20180508
  Serious: No
  Sender: FDA-Public Use
  Company Number: US-JNJFOC-20170118418

PATIENT
  Age: 11 Year
  Sex: Male

DRUGS (32)
  1. RISPERDAL [Suspect]
     Active Substance: RISPERIDONE
     Indication: ABNORMAL BEHAVIOUR
     Route: 048
     Dates: start: 20140826, end: 20141002
  2. INVEGA [Suspect]
     Active Substance: PALIPERIDONE
     Indication: ATTENTION DEFICIT/HYPERACTIVITY DISORDER
     Route: 048
     Dates: start: 20120211, end: 20130424
  3. RISPERIDONE. [Suspect]
     Active Substance: RISPERIDONE
     Indication: ABNORMAL BEHAVIOUR
     Route: 048
     Dates: start: 20100923, end: 20110111
  4. RISPERIDONE. [Suspect]
     Active Substance: RISPERIDONE
     Indication: ATTENTION DEFICIT/HYPERACTIVITY DISORDER
     Route: 048
     Dates: start: 20110420, end: 20111113
  5. RISPERDAL [Suspect]
     Active Substance: RISPERIDONE
     Indication: DEVELOPMENTAL DELAY
     Route: 048
     Dates: start: 20050412, end: 20090501
  6. INVEGA [Suspect]
     Active Substance: PALIPERIDONE
     Indication: ABNORMAL BEHAVIOUR
     Route: 048
     Dates: start: 20120211, end: 20130424
  7. RISPERDAL M-TAB [Suspect]
     Active Substance: RISPERIDONE
     Indication: ABNORMAL BEHAVIOUR
     Route: 048
     Dates: start: 20100608, end: 20100801
  8. RISPERIDONE. [Suspect]
     Active Substance: RISPERIDONE
     Indication: DEVELOPMENTAL DELAY
     Route: 048
     Dates: start: 20100923, end: 20110111
  9. RISPERDAL [Suspect]
     Active Substance: RISPERIDONE
     Indication: DEVELOPMENTAL DELAY
     Route: 048
     Dates: start: 20100608, end: 20120925
  10. RISPERIDONE. [Suspect]
     Active Substance: RISPERIDONE
     Indication: DEVELOPMENTAL DELAY
     Route: 048
     Dates: start: 20140426, end: 20141002
  11. RISPERIDONE. [Suspect]
     Active Substance: RISPERIDONE
     Indication: DEVELOPMENTAL DELAY
     Route: 048
     Dates: start: 20110420, end: 20111113
  12. RISPERIDONE. [Suspect]
     Active Substance: RISPERIDONE
     Indication: ABNORMAL BEHAVIOUR
     Route: 048
     Dates: start: 20110420, end: 20111113
  13. RISPERIDONE. [Suspect]
     Active Substance: RISPERIDONE
     Indication: PRODUCT USED FOR UNKNOWN INDICATION
     Route: 048
  14. INVEGA [Suspect]
     Active Substance: PALIPERIDONE
     Indication: DEVELOPMENTAL DELAY
     Route: 048
     Dates: start: 20120211, end: 20130424
  15. INVEGA [Suspect]
     Active Substance: PALIPERIDONE
     Indication: ATTENTION DEFICIT/HYPERACTIVITY DISORDER
     Route: 048
     Dates: start: 20090612, end: 20100422
  16. INVEGA [Suspect]
     Active Substance: PALIPERIDONE
     Indication: ABNORMAL BEHAVIOUR
     Route: 048
     Dates: start: 20090612, end: 20100422
  17. RISPERIDONE. [Suspect]
     Active Substance: RISPERIDONE
     Indication: ATTENTION DEFICIT/HYPERACTIVITY DISORDER
     Route: 048
     Dates: start: 20140426, end: 20141002
  18. RISPERDAL [Suspect]
     Active Substance: RISPERIDONE
     Indication: ATTENTION DEFICIT/HYPERACTIVITY DISORDER
     Route: 048
     Dates: start: 20140826, end: 20141002
  19. RISPERDAL [Suspect]
     Active Substance: RISPERIDONE
     Indication: ATTENTION DEFICIT/HYPERACTIVITY DISORDER
     Route: 048
     Dates: start: 20100608, end: 20120925
  20. RISPERDAL [Suspect]
     Active Substance: RISPERIDONE
     Indication: ABNORMAL BEHAVIOUR
     Route: 048
     Dates: start: 20050412, end: 20090501
  21. RISPERDAL [Suspect]
     Active Substance: RISPERIDONE
     Indication: ABNORMAL BEHAVIOUR
     Route: 048
     Dates: start: 20100608, end: 20120925
  22. INVEGA [Suspect]
     Active Substance: PALIPERIDONE
     Indication: DEVELOPMENTAL DELAY
     Route: 048
     Dates: start: 20090612, end: 20100422
  23. RISPERIDONE. [Suspect]
     Active Substance: RISPERIDONE
     Indication: PRODUCT USED FOR UNKNOWN INDICATION
     Route: 048
  24. RISPERDAL [Suspect]
     Active Substance: RISPERIDONE
     Indication: ABNORMAL BEHAVIOUR
     Route: 048
     Dates: start: 20140814
  25. RISPERDAL M-TAB [Suspect]
     Active Substance: RISPERIDONE
     Indication: DEVELOPMENTAL DELAY
     Route: 048
     Dates: start: 20100608, end: 20100801
  26. RISPERDAL [Suspect]
     Active Substance: RISPERIDONE
     Indication: DEVELOPMENTAL DELAY
     Route: 048
     Dates: start: 20140826, end: 20141002
  27. RISPERDAL [Suspect]
     Active Substance: RISPERIDONE
     Indication: DEVELOPMENTAL DELAY
     Route: 048
     Dates: start: 20140814
  28. RISPERDAL [Suspect]
     Active Substance: RISPERIDONE
     Indication: ATTENTION DEFICIT/HYPERACTIVITY DISORDER
     Route: 048
     Dates: start: 20050412, end: 20090501
  29. RISPERDAL [Suspect]
     Active Substance: RISPERIDONE
     Indication: ATTENTION DEFICIT/HYPERACTIVITY DISORDER
     Route: 048
     Dates: start: 20140814
  30. RISPERDAL M-TAB [Suspect]
     Active Substance: RISPERIDONE
     Indication: ATTENTION DEFICIT/HYPERACTIVITY DISORDER
     Route: 048
     Dates: start: 20100608, end: 20100801
  31. RISPERIDONE. [Suspect]
     Active Substance: RISPERIDONE
     Indication: ATTENTION DEFICIT/HYPERACTIVITY DISORDER
     Route: 048
     Dates: start: 20100923, end: 20110111
  32. RISPERIDONE. [Suspect]
     Active Substance: RISPERIDONE
     Indication: ABNORMAL BEHAVIOUR
     Route: 048
     Dates: start: 20140426, end: 20141002

REACTIONS (5)
  - Weight increased [Unknown]
  - Emotional distress [Unknown]
  - Off label use [Unknown]
  - Gynaecomastia [Unknown]
  - Product use in unapproved indication [Unknown]

NARRATIVE: CASE EVENT DATE: 20090612
